FAERS Safety Report 9392680 (Version 3)
Quarter: 2014Q1

REPORT INFORMATION
  Report Type: Spontaneous
  Country: BR (occurrence: BR)
  Receive Date: 20130710
  Receipt Date: 20140304
  Transmission Date: 20141002
  Serious: Yes (Hospitalization, Other)
  Sender: FDA-Public Use
  Company Number: PHHY2013BR071402

PATIENT
  Age: 67 Year
  Sex: Male
  Weight: 87 kg

DRUGS (6)
  1. DIOVAN [Suspect]
     Indication: HYPERTENSION
     Dosage: 1 DF (320 MG), DAILY
     Route: 048
     Dates: start: 2008
  2. DIOVAN [Suspect]
     Dosage: 1 DF (320 MG), DAILY
     Route: 048
  3. DIOVAN [Suspect]
     Dosage: 320 MG, DAILY
     Route: 048
  4. DIOVAN HCT [Concomitant]
     Dosage: 320/12.5 MG, UNK
  5. DIOVAN AMLO [Concomitant]
     Dosage: 320/5 MG, UNK
  6. LABIRIN [Concomitant]
     Indication: DIZZINESS
     Dosage: UNK DF (ONE OR TWO TABLETS PER DAY), UNK
     Route: 048

REACTIONS (20)
  - Nephrolithiasis [Recovered/Resolved]
  - Renal disorder [Recovered/Resolved]
  - Dengue fever [Recovered/Resolved]
  - Headache [Recovered/Resolved]
  - Pain [Recovered/Resolved]
  - Large intestine polyp [Recovered/Resolved]
  - Epistaxis [Recovered/Resolved]
  - Mouth haemorrhage [Recovered/Resolved]
  - Tremor [Recovered/Resolved]
  - Dyspnoea [Recovered/Resolved]
  - Near drowning [Recovered/Resolved]
  - Chest pain [Recovered/Resolved]
  - Dysphonia [Recovered/Resolved]
  - Nasal congestion [Recovered/Resolved]
  - Chest discomfort [Recovered/Resolved]
  - Anxiety [Recovered/Resolved]
  - Depression [Recovered/Resolved]
  - Nervousness [Recovered/Resolved]
  - Insomnia [Recovered/Resolved]
  - Blood pressure increased [Recovered/Resolved]
